FAERS Safety Report 10698975 (Version 3)
Quarter: 2015Q1

REPORT INFORMATION
  Report Type: Spontaneous
  Country: US (occurrence: US)
  Receive Date: 20150108
  Receipt Date: 20150227
  Transmission Date: 20150721
  Serious: Yes (Death, Other)
  Sender: FDA-Public Use
  Company Number: US-GLAXOSMITHKLINE-US2014GSK044654

PATIENT
  Age: 83 Year
  Sex: Female

DRUGS (1)
  1. ADVAIR DISKUS [Suspect]
     Active Substance: FLUTICASONE PROPIONATE\SALMETEROL XINAFOATE
     Indication: CHRONIC OBSTRUCTIVE PULMONARY DISEASE
     Dosage: UNK, U
     Route: 055

REACTIONS (6)
  - Living in residential institution [Recovered/Resolved]
  - Chronic obstructive pulmonary disease [Fatal]
  - Inspiratory capacity decreased [Unknown]
  - Death [Fatal]
  - Drug dose omission [Unknown]
  - Hypophagia [Unknown]

NARRATIVE: CASE EVENT DATE: 201502
